FAERS Safety Report 17345795 (Version 1)
Quarter: 2020Q1

REPORT INFORMATION
  Report Type: Spontaneous
  Country: US (occurrence: US)
  Receive Date: 20200129
  Receipt Date: 20200129
  Transmission Date: 20200409
  Serious: No
  Sender: FDA-Public Use
  Company Number: US-009507513-2001USA008172

PATIENT
  Sex: Female

DRUGS (1)
  1. DIFICID [Suspect]
     Active Substance: FIDAXOMICIN
     Indication: CLOSTRIDIUM DIFFICILE COLITIS
     Dosage: 1 TABLET TWICE DAILY BY MOUTH
     Route: 048
     Dates: start: 201912, end: 201912

REACTIONS (1)
  - Rash [Unknown]

NARRATIVE: CASE EVENT DATE: 201912
